FAERS Safety Report 20501941 (Version 1)
Quarter: 2022Q1

REPORT INFORMATION
  Report Type: Spontaneous
  Country: US (occurrence: None)
  Receive Date: 20220221
  Receipt Date: 20220221
  Transmission Date: 20220423
  Serious: Yes (Disabling)
  Sender: FDA-Public Use
  Company Number: None

PATIENT
  Sex: Female

DRUGS (14)
  1. SILDENAFIL [Suspect]
     Active Substance: SILDENAFIL
     Indication: Pulmonary hypertension
     Dosage: DOSAGE: TAKE 1 TABLET BY MOUTH EVERY 8 HOURS
     Dates: start: 20210804
  2. ACETAMIN [Concomitant]
  3. CALCIUM TAB VIT D [Concomitant]
  4. CRESTOR TAB [Concomitant]
  5. FERROUS SULF TAB [Concomitant]
  6. GLIMEPIRIDE TAB [Concomitant]
  7. METFORMIN TAB [Concomitant]
  8. METOPROL SUC [Concomitant]
  9. METOPROL TAR [Concomitant]
  10. OMEPRAZOLE [Concomitant]
  11. ROSUVASTATIN TAB [Concomitant]
  12. ROSUVASTATIN TAB [Concomitant]
  13. STIOLTO AER [Concomitant]
  14. TYLENOL [Concomitant]

REACTIONS (3)
  - Arthralgia [None]
  - Pruritus [None]
  - Renal disorder [None]
